FAERS Safety Report 6442329-1 (Version None)
Quarter: 2009Q4

REPORT INFORMATION
  Report Type: 
  Country: None (occurrence: None)
  Receive Date: 20091112
  Receipt Date: 20091027
  Transmission Date: 20100525
  Serious: Yes (Life-Threatening)
  Sender: FDA-Public Use
  Company Number: CZ-1171386

PATIENT
  Age: 69 Year
  Sex: Female

DRUGS (2)
  1. FLUORESCITE [Suspect]
     Indication: ANGIOGRAM
     Dosage: 5 ML, INTRAVENOUS BOLUS
     Route: 040
     Dates: start: 20091014, end: 20091014
  2. DITHIADEN (BISULEPIN HYDROCHLORIDE) [Concomitant]

REACTIONS (4)
  - CIRCULATORY COLLAPSE [None]
  - DYSPNOEA [None]
  - IMMEDIATE POST-INJECTION REACTION [None]
  - NAUSEA [None]
